FAERS Safety Report 20746378 (Version 1)
Quarter: 2022Q2

REPORT INFORMATION
  Report Type: Spontaneous
  Country: US (occurrence: US)
  Receive Date: 20220425
  Receipt Date: 20220425
  Transmission Date: 20220721
  Serious: Yes (Hospitalization)
  Sender: FDA-Public Use
  Company Number: US-BRISTOL-MYERS SQUIBB COMPANY-2022-018336

PATIENT
  Age: 41 Year
  Sex: Male
  Weight: 65.3 kg

DRUGS (11)
  1. ELIQUIS [Interacting]
     Active Substance: APIXABAN
     Indication: Pulmonary embolism
     Dosage: 10 MG
     Route: 048
     Dates: start: 202201
  2. ELIQUIS [Interacting]
     Active Substance: APIXABAN
     Indication: Splenic artery thrombosis
     Dosage: 5 MG
     Route: 048
  3. VORICONAZOLE [Interacting]
     Active Substance: VORICONAZOLE
     Indication: Oral candidiasis
     Dosage: UNK
  4. ACYCLOVIR [Concomitant]
     Active Substance: ACYCLOVIR
     Dosage: UNK
     Route: 065
  5. BACTRIM [Concomitant]
     Active Substance: SULFAMETHOXAZOLE\TRIMETHOPRIM
     Dosage: UNK
     Route: 065
  6. AMLODIPINE [Concomitant]
     Active Substance: AMLODIPINE BESYLATE
     Dosage: UNK
     Route: 065
  7. ROSUVASTATIN [Concomitant]
     Active Substance: ROSUVASTATIN
     Dosage: UNK
     Route: 065
  8. NEXIUM [Concomitant]
     Active Substance: ESOMEPRAZOLE MAGNESIUM
     Dosage: UNK
     Route: 065
  9. URSODIOL [Concomitant]
     Active Substance: URSODIOL
     Dosage: UNK
     Route: 065
  10. GABAPENTIN [Concomitant]
     Active Substance: GABAPENTIN
     Dosage: UNK
     Route: 065
  11. JAKAFI [Concomitant]
     Active Substance: RUXOLITINIB
     Dosage: UNK
     Route: 042

REACTIONS (3)
  - Oesophageal disorder [Unknown]
  - Condition aggravated [Unknown]
  - Drug interaction [Unknown]
